FAERS Safety Report 24445367 (Version 1)
Quarter: 2024Q4

REPORT INFORMATION
  Report Type: Spontaneous
  Country: US (occurrence: US)
  Receive Date: 20241016
  Receipt Date: 20241016
  Transmission Date: 20250115
  Serious: No
  Sender: SANDOZ
  Company Number: US-002147023-NVSC2024US053102

PATIENT
  Sex: Female
  Weight: 78 kg

DRUGS (7)
  1. COMBIPATCH [Suspect]
     Active Substance: ESTRADIOL\NORETHINDRONE ACETATE
     Indication: Brain fog
     Dosage: UNK (0.05/0.14 MG) (3-4 DAYS)
     Route: 065
  2. COMBIPATCH [Suspect]
     Active Substance: ESTRADIOL\NORETHINDRONE ACETATE
     Indication: Menopausal symptoms
     Dosage: UNK (0.05/0.14 MG) (TRANSDERMAL SYSTEM) (TUESDAYS AND FRIDAYS)
     Route: 062
  3. COMBIPATCH [Suspect]
     Active Substance: ESTRADIOL\NORETHINDRONE ACETATE
     Indication: Night sweats
     Dosage: UNK (0.05/0.14MG) (TRANSDERMAL SYSTEM)
     Route: 062
     Dates: start: 202302
  4. FISH OIL [Concomitant]
     Active Substance: FISH OIL
     Indication: Product used for unknown indication
     Dosage: 3 G (DAILY)
     Route: 065
  5. VITA K [Concomitant]
     Active Substance: OCTINOXATE
     Indication: Product used for unknown indication
     Dosage: 120 UG (DAILY)
     Route: 065
  6. Vita d [Concomitant]
     Dosage: 100 UG (DAILY)
     Route: 065
  7. Vita d [Concomitant]
     Indication: Product used for unknown indication
     Dosage: 25 UG (DAILY)
     Route: 065

REACTIONS (8)
  - Therapeutic response unexpected [Recovered/Resolved]
  - Application site irritation [Recovering/Resolving]
  - Application site erythema [Recovering/Resolving]
  - Application site pruritus [Recovering/Resolving]
  - Weight increased [Unknown]
  - Product residue present [Not Recovered/Not Resolved]
  - Product storage error [Recovered/Resolved]
  - Off label use [Not Recovered/Not Resolved]

NARRATIVE: CASE EVENT DATE: 20220101
